FAERS Safety Report 13309388 (Version 5)
Quarter: 2017Q4

REPORT INFORMATION
  Report Type: Report from Study
  Country: CA (occurrence: CA)
  Receive Date: 20170309
  Receipt Date: 20171024
  Transmission Date: 20180320
  Serious: Yes (Hospitalization, Other)
  Sender: FDA-Public Use
  Company Number: CA-JNJFOC-20170305936

PATIENT
  Age: 71 Year
  Sex: Male
  Weight: 107 kg

DRUGS (21)
  1. DEXAMETHAZONE [Concomitant]
     Active Substance: DEXAMETHASONE
     Dosage: 1-2 TAB ONCE A DAY
     Route: 065
     Dates: start: 20171017, end: 20171017
  2. ELIQUIS [Concomitant]
     Active Substance: APIXABAN
  3. MOXIFLOXACINE [Concomitant]
     Active Substance: MOXIFLOXACIN
     Dosage: PUT 1 DROP IN RIGHT EYE 4 TIMES A DAY
     Route: 065
     Dates: start: 20170828, end: 20170829
  4. CRESTOR [Concomitant]
     Active Substance: ROSUVASTATIN CALCIUM
     Route: 048
  5. ROSUVASTATIN. [Concomitant]
     Active Substance: ROSUVASTATIN
     Route: 065
     Dates: start: 20170307, end: 20170930
  6. OXAZEPAM. [Concomitant]
     Active Substance: OXAZEPAM
     Route: 065
     Dates: start: 20170818, end: 20170930
  7. NEPAFENAC [Concomitant]
     Active Substance: NEPAFENAC
     Dosage: PUT 1 DROP IN RIGHT EYE 3 TIMES A DAY
     Route: 047
     Dates: start: 20170828, end: 20170829
  8. ERYTHROMYCIN GLUCEPTATE. [Concomitant]
     Active Substance: ERYTHROMYCIN GLUCEPTATE
     Dosage: APPLY ON LEFT EYE 4 TIMES A DAY FOR 5 DAYS
     Route: 065
     Dates: start: 20170828, end: 20170829
  9. NEPAFENAC [Concomitant]
     Active Substance: NEPAFENAC
     Route: 065
  10. LASIX [Concomitant]
     Active Substance: FUROSEMIDE
     Route: 065
  11. IMBRUVICA [Suspect]
     Active Substance: IBRUTINIB
     Indication: CHRONIC LYMPHOCYTIC LEUKAEMIA
     Route: 048
     Dates: start: 20150303, end: 20170921
  12. PANTOPRAZOLE [Concomitant]
     Active Substance: PANTOPRAZOLE
     Route: 065
     Dates: start: 20171017, end: 20171017
  13. FUROSEMIDE. [Concomitant]
     Active Substance: FUROSEMIDE
     Route: 065
     Dates: start: 20170518, end: 20170930
  14. SOTALOL. [Concomitant]
     Active Substance: SOTALOL
     Dosage: 1/2 TABLET TWICE A DAY
     Route: 065
     Dates: start: 20170204, end: 20170930
  15. GABAPENTIN. [Concomitant]
     Active Substance: GABAPENTIN
     Route: 065
  16. GABAPENTIN. [Concomitant]
     Active Substance: GABAPENTIN
     Route: 065
     Dates: end: 20171016
  17. GABAPENTIN. [Concomitant]
     Active Substance: GABAPENTIN
     Route: 065
     Dates: start: 20170405
  18. TAMSULOSIN [Concomitant]
     Active Substance: TAMSULOSIN
     Dosage: 1-2 TAB ONCE A DAY
     Route: 065
     Dates: start: 20171017, end: 20171017
  19. PREDNISOLONE. [Concomitant]
     Active Substance: PREDNISOLONE
     Route: 065
     Dates: start: 20170828, end: 20170920
  20. PREDNISOLONE. [Concomitant]
     Active Substance: PREDNISOLONE
     Route: 065
  21. APIXABAN [Concomitant]
     Active Substance: APIXABAN
     Route: 065
     Dates: start: 20170203, end: 20170930

REACTIONS (6)
  - Eye haemorrhage [Recovered/Resolved]
  - Atrial fibrillation [Not Recovered/Not Resolved]
  - Pneumonia [Recovered/Resolved]
  - Prostate cancer [Recovered/Resolved]
  - Uveitis [Not Recovered/Not Resolved]
  - Arrhythmia [Recovered/Resolved]

NARRATIVE: CASE EVENT DATE: 201611
